FAERS Safety Report 4644754-8 (Version None)
Quarter: 2005Q2

REPORT INFORMATION
  Report Type: 
  Country: None (occurrence: None)
  Receive Date: 20050426
  Receipt Date: 20050418
  Transmission Date: 20051028
  Serious: Yes (Hospitalization)
  Sender: FDA-Public Use
  Company Number: 200513261US

PATIENT
  Sex: Male

DRUGS (2)
  1. KETEK [Suspect]
     Dosage: DOSE: UNK
  2. CIPRO XR [Concomitant]

REACTIONS (2)
  - FLANK PAIN [None]
  - PYREXIA [None]
